FAERS Safety Report 7412100-2 (Version None)
Quarter: 2011Q2

REPORT INFORMATION
  Report Type: 
  Country: None (occurrence: None)
  Receive Date: 20110405
  Receipt Date: 20110329
  Transmission Date: 20111010
  Serious: Yes (Death)
  Sender: FDA-Public Use
  Company Number: 201110263

PATIENT
  Age: 59 Year
  Sex: Female

DRUGS (3)
  1. MARCAINE HCL [Concomitant]
  2. LIORESAL [Suspect]
     Indication: MUSCLE SPASTICITY
     Dosage: DAILY, INTRATHECAL
     Route: 037
  3. DILAUDID [Concomitant]

REACTIONS (1)
  - DEATH [None]
